FAERS Safety Report 8178312-8 (Version None)
Quarter: 2012Q1

REPORT INFORMATION
  Report Type: 
  Country: None (occurrence: None)
  Receive Date: 20120301
  Receipt Date: 20120228
  Transmission Date: 20120608
  Serious: Yes (Other)
  Sender: FDA-Public Use
  Company Number: MX-PFIZER INC-2012049538

PATIENT
  Age: 35 Year
  Sex: Female

DRUGS (2)
  1. LYRICA [Suspect]
     Indication: NECK PAIN
     Dosage: 75 MG, SINGLE
     Route: 048
     Dates: start: 20120201, end: 20120201
  2. LYRICA [Suspect]
     Indication: BACK PAIN

REACTIONS (2)
  - HYPERTENSION [None]
  - BLOOD TRIGLYCERIDES INCREASED [None]
